FAERS Safety Report 7249144-X (Version None)
Quarter: 2011Q1

REPORT INFORMATION
  Report Type: 
  Country: None (occurrence: None)
  Receive Date: 20110128
  Receipt Date: 20101115
  Transmission Date: 20110831
  Serious: Yes (Other)
  Sender: FDA-Public Use
  Company Number: DE-BAYER-201045765GPV

PATIENT
  Sex: Male

DRUGS (1)
  1. CIPROFLOXACIN MONOHYDROCHLORIDE [Suspect]
     Dosage: 500 MG, BID

REACTIONS (6)
  - SKIN DISCOLOURATION [None]
  - SLEEP DISORDER [None]
  - PAIN OF SKIN [None]
  - BURNING SENSATION [None]
  - DEPRESSION [None]
  - NIGHTMARE [None]
